FAERS Safety Report 6447646-7 (Version None)
Quarter: 2009Q4

REPORT INFORMATION
  Report Type: 
  Country: None (occurrence: None)
  Receive Date: 20091119
  Receipt Date: 20091112
  Transmission Date: 20100525
  Serious: Yes (Other)
  Sender: FDA-Public Use
  Company Number: US-JNJCH-2009026866

PATIENT
  Age: 76 Year
  Sex: Female
  Weight: 57.2 kg

DRUGS (2)
  1. BENADRYL [Suspect]
     Indication: HYPERSENSITIVITY
     Dosage: TEXT:2 TABLETS 1X A NIGHT
     Route: 048
     Dates: start: 20090202, end: 20090701
  2. COZAAR [Concomitant]
     Indication: HYPERTENSION
     Dosage: TEXT:50 MG 1X A DAY
     Route: 065

REACTIONS (3)
  - DRY MOUTH [None]
  - TOOTH EXTRACTION [None]
  - TOOTH LOSS [None]
